FAERS Safety Report 21754152 (Version 1)
Quarter: 2022Q4

REPORT INFORMATION
  Report Type: Spontaneous
  Country: CH (occurrence: CH)
  Receive Date: 20221220
  Receipt Date: 20221220
  Transmission Date: 20230113
  Serious: Yes (Hospitalization)
  Sender: FDA-Public Use
  Company Number: None

PATIENT
  Age: 59 Year
  Sex: Female

DRUGS (10)
  1. MYFORTIC [Suspect]
     Active Substance: MYCOPHENOLATE SODIUM
     Indication: Immunosuppression
     Dosage: 360 MG, QD
     Route: 048
     Dates: end: 20220915
  2. BACTRIM [Suspect]
     Active Substance: SULFAMETHOXAZOLE\TRIMETHOPRIM
     Indication: Immunosuppression
     Dosage: UNK (800/160MG 3 TIMES)
     Route: 048
     Dates: end: 20220917
  3. CALCIUM\CHOLECALCIFEROL [Concomitant]
     Active Substance: CALCIUM\CHOLECALCIFEROL
     Indication: Product used for unknown indication
     Dosage: 1 DOSAGE FORM, QD (500 MG /800 IU 1-0-0-0)
     Route: 048
  4. TEVA EZETIMIBE [Concomitant]
     Indication: Product used for unknown indication
     Dosage: 10 MG, QD (1-0-0-0)
     Route: 048
  5. KCL HAUSMANN [Concomitant]
     Indication: Product used for unknown indication
     Dosage: 10 MMOL, Q12H (1-0-1-0)
     Route: 048
  6. METOPROLOL SUCCINATE [Concomitant]
     Active Substance: METOPROLOL SUCCINATE
     Indication: Product used for unknown indication
     Dosage: 12.5 MG, QD (0.5-0-0-0)
     Route: 048
  7. RAPAMUNE [Concomitant]
     Active Substance: SIROLIMUS
     Indication: Product used for unknown indication
     Dosage: 2 MG, QD (2 MG 1-0-0-0, INCREASED TO 3-0-0-0 DURING HOSPITALISATION)
     Route: 048
     Dates: end: 20220908
  8. RAPAMUNE [Concomitant]
     Active Substance: SIROLIMUS
     Dosage: 6 MG, QD (2 MG 1-0-0-0, INCREASED TO 3-0-0-0 DURING HOSPITALISATION)
     Route: 048
     Dates: start: 20220909
  9. ZOLPIDEM TARTRATE [Concomitant]
     Active Substance: ZOLPIDEM TARTRATE
     Indication: Product used for unknown indication
     Dosage: 10 MG, QD (0-0-0-1)
     Route: 048
  10. NOVORAPID [Concomitant]
     Active Substance: INSULIN ASPART
     Indication: Product used for unknown indication
     Dosage: 1 DOSAGE FORM, PRN
     Route: 058

REACTIONS (1)
  - Pancytopenia [Recovering/Resolving]

NARRATIVE: CASE EVENT DATE: 20220909
